FAERS Safety Report 5145672-1 (Version None)
Quarter: 2006Q4

REPORT INFORMATION
  Report Type: 
  Country: None (occurrence: None)
  Receive Date: 20061024
  Receipt Date: 20061015
  Transmission Date: 20070319
  Serious: Yes (Other)
  Sender: FDA-Public Use
  Company Number: 200610301BBE

PATIENT
  Age: 10 Month
  Sex: Male

DRUGS (2)
  1. IMMUNE GLOBULIN INTRAVENOUS (HUMAN) [Suspect]
     Indication: KAWASAKI'S DISEASE
  2. FLURBIPROFEN [Suspect]
     Dosage: 4 MG/KG,

REACTIONS (4)
  - ANAEMIA [None]
  - CONJUNCTIVAL HYPERAEMIA [None]
  - DUODENAL ULCER [None]
  - HELICOBACTER PYLORI IDENTIFICATION TEST POSITIVE [None]
